FAERS Safety Report 4438962-9 (Version None)
Quarter: 2004Q3

REPORT INFORMATION
  Report Type: 
  Country: None (occurrence: None)
  Receive Date: 20040830
  Receipt Date: 20040816
  Transmission Date: 20050211
  Serious: No
  Sender: FDA-Public Use
  Company Number: 2004GB01830

PATIENT
  Age: 72 Year
  Sex: Male
  Weight: 76 kg

DRUGS (6)
  1. FELODIPINE [Suspect]
     Dosage: 10 MG DAILY PO
     Route: 048
     Dates: start: 20040513
  2. LAMOTRIGINE [Suspect]
     Indication: EPILEPSY
     Dosage: 50 MG DAILY PO
     Route: 048
     Dates: start: 20040331, end: 20040623
  3. DOXAZOSIN [Suspect]
     Dosage: 4 MG DAILY PO
     Route: 048
     Dates: start: 20040430
  4. AMIODARONE [Suspect]
     Dosage: 200 MG DAILY PO
     Route: 048
  5. SIMVASTATIN [Suspect]
     Dosage: 40 MG DAILY PO
     Route: 048
     Dates: start: 20030401
  6. ASPIRIN [Concomitant]

REACTIONS (1)
  - RENAL FAILURE ACUTE [None]
